FAERS Safety Report 25788235 (Version 2)
Quarter: 2025Q3

REPORT INFORMATION
  Report Type: Report from Study
  Country: US (occurrence: US)
  Receive Date: 20250910
  Receipt Date: 20250924
  Transmission Date: 20251021
  Serious: Yes (Other)
  Sender: ABBVIE
  Company Number: US-ABBVIE-6451530

PATIENT
  Age: 63 Year
  Sex: Female

DRUGS (3)
  1. SKYRIZI [Suspect]
     Active Substance: RISANKIZUMAB-RZAA
     Indication: Psoriatic arthropathy
     Route: 058
     Dates: start: 20250530, end: 20250530
  2. SKYRIZI [Suspect]
     Active Substance: RISANKIZUMAB-RZAA
     Indication: Psoriatic arthropathy
     Route: 058
     Dates: start: 2025
  3. BETAMETHASONE DIPROPIONAT [Concomitant]
     Indication: Product used for unknown indication

REACTIONS (4)
  - Colon cancer [Recovering/Resolving]
  - Therapeutic product effect incomplete [Unknown]
  - Psoriatic arthropathy [Unknown]
  - Stress [Unknown]

NARRATIVE: CASE EVENT DATE: 20250101
